FAERS Safety Report 21654678 (Version 1)
Quarter: 2022Q4

REPORT INFORMATION
  Report Type: Spontaneous
  Country: CN (occurrence: CN)
  Receive Date: 20221129
  Receipt Date: 20221129
  Transmission Date: 20230112
  Serious: Yes (Hospitalization)
  Sender: FDA-Public Use
  Company Number: CN-STRIDES ARCOLAB LIMITED-2022SP015878

PATIENT
  Age: 52 Year
  Sex: Male

DRUGS (4)
  1. CARBOPLATIN [Suspect]
     Active Substance: CARBOPLATIN
     Indication: Lung squamous cell carcinoma metastatic
     Dosage: 300 MILLIGRAM, CYCLICAL; (ON DAY 2); (EVERY 3 WEEKS); SECOND-LINE THERAPY
     Route: 065
  2. ETOPOSIDE [Suspect]
     Active Substance: ETOPOSIDE
     Indication: Lung squamous cell carcinoma metastatic
     Dosage: 0.1 GRAM, CYCLICAL; (ON DAYS 1-3); (EVERY 3 WEEKS); (SECOND-LINE THERAPY)
     Route: 065
  3. CISPLATIN [Suspect]
     Active Substance: CISPLATIN
     Indication: Lung squamous cell carcinoma metastatic
     Dosage: 30 MILLIGRAM; CYCLICAL; (ON DAYS 1-4); EVERY 3 WEEKS; TWO CYCLES
     Route: 065
  4. GEMCITABINE [Suspect]
     Active Substance: GEMCITABINE
     Indication: Lung squamous cell carcinoma metastatic
     Dosage: 1.6 GRAM; CYCLICAL; EVERY 3 WEEKS; TWO CYCLES ON DAY 1 AND 8
     Route: 065

REACTIONS (2)
  - Tumour lysis syndrome [Recovered/Resolved]
  - Drug ineffective for unapproved indication [Unknown]
